FAERS Safety Report 7426169-2 (Version None)
Quarter: 2011Q2

REPORT INFORMATION
  Report Type: 
  Country: None (occurrence: None)
  Receive Date: 20110420
  Receipt Date: 20110414
  Transmission Date: 20111010
  Serious: Yes (Hospitalization)
  Sender: FDA-Public Use
  Company Number: PHHO2010VE16420

PATIENT
  Sex: Female
  Weight: 72 kg

DRUGS (11)
  1. ATORVASTATIN [Concomitant]
     Indication: DYSLIPIDAEMIA
  2. PANTOPRAZOLE [Concomitant]
  3. ALISKIREN [Suspect]
     Indication: CARDIAC FAILURE
  4. BLINDED NO TREATMENT RECEIVED [Suspect]
     Dosage: CODE NOT BROKEN
     Route: 048
     Dates: start: 20100615, end: 20101007
  5. CLOPIDOGREL [Concomitant]
  6. BLINDED ALISKIREN [Suspect]
     Dosage: CODE NOT BROKEN
     Route: 048
     Dates: start: 20100615, end: 20101007
  7. COMPARATOR ENALAPRIL [Suspect]
     Indication: CARDIAC FAILURE
  8. BLINDED ENALAPRIL [Suspect]
     Dosage: CODE NOT BROKEN
     Route: 048
     Dates: start: 20100615, end: 20101007
  9. ASPIRIN [Concomitant]
  10. FUROSEMIDE [Concomitant]
     Indication: CARDIAC FAILURE CONGESTIVE
  11. BISOPROLOL [Concomitant]
     Indication: CARDIAC FAILURE CONGESTIVE

REACTIONS (11)
  - PRODUCTIVE COUGH [None]
  - EXERCISE TOLERANCE DECREASED [None]
  - DYSPNOEA PAROXYSMAL NOCTURNAL [None]
  - DYSPNOEA [None]
  - FATIGUE [None]
  - IRRITABLE BOWEL SYNDROME [None]
  - ABDOMINAL DISTENSION [None]
  - CARDIAC FAILURE CONGESTIVE [None]
  - VOMITING [None]
  - NAUSEA [None]
  - ABDOMINAL PAIN [None]
